FAERS Safety Report 5993691-5 (Version None)
Quarter: 2008Q4

REPORT INFORMATION
  Report Type: 
  Country: None (occurrence: None)
  Receive Date: 20081212
  Receipt Date: 20081201
  Transmission Date: 20090506
  Serious: Yes (Hospitalization)
  Sender: FDA-Public Use
  Company Number: JP-EISAI MEDICAL RESEARCH-E2090-00607-SPO-JP

PATIENT
  Sex: Male

DRUGS (31)
  1. EXCEGRAN [Suspect]
     Indication: DRUG USE FOR UNKNOWN INDICATION
     Dosage: UNKNOWN
     Route: 048
     Dates: end: 20080101
  2. ALEVIATIN [Suspect]
     Indication: CONVULSION
     Route: 048
     Dates: end: 20080927
  3. ALEVIATIN [Suspect]
     Route: 042
     Dates: start: 20080928, end: 20080929
  4. ALEVIATIN [Suspect]
     Route: 042
     Dates: start: 20081007, end: 20081010
  5. ALEVIATIN [Suspect]
     Route: 048
     Dates: start: 20080101, end: 20081030
  6. ALEVIATIN [Suspect]
     Dosage: 100 MG X G 1.5 G X 3 VIA TUBE
     Dates: start: 20081105
  7. ISOSORBIDE DINITRATE [Concomitant]
  8. ASPIRIN [Concomitant]
     Route: 048
     Dates: end: 20080928
  9. ASPIRIN [Concomitant]
     Route: 048
     Dates: start: 20081001, end: 20081011
  10. BUFFERIN [Concomitant]
     Route: 048
     Dates: start: 20081012
  11. BEACHLON (TICLOPIDINE HYDROCHLORIDE) [Concomitant]
     Route: 048
     Dates: end: 20080928
  12. BEACHLON (TICLOPIDINE HYDROCHLORIDE) [Concomitant]
     Dates: start: 20081001, end: 20081011
  13. NICHISTATE [Concomitant]
     Route: 048
     Dates: start: 20081012
  14. LIVALO (PITAVASTATIN CALCIUM) [Concomitant]
     Indication: HYPERLIPIDAEMIA
     Route: 048
     Dates: end: 20081011
  15. ZETIA [Concomitant]
     Indication: HYPERLIPIDAEMIA
     Route: 048
     Dates: end: 20081011
  16. CRESTOR [Concomitant]
     Route: 048
     Dates: end: 20081011
  17. SENNOSIDE (SENNOSIDE) [Concomitant]
     Indication: CONSTIPATION
     Route: 048
  18. MAGMITT (MAGNESIUM OXIDE) [Concomitant]
     Indication: CONSTIPATION
     Route: 048
     Dates: end: 20080928
  19. BIOFERMIN [Concomitant]
     Dates: end: 20080928
  20. PANTOSIN [Concomitant]
     Dates: end: 20080928
  21. TOWATHIEM (NON-PYRINE COLD PREPARATION) [Concomitant]
     Dates: end: 20080928
  22. ERYTHROMYCIN [Concomitant]
     Route: 048
     Dates: end: 20080928
  23. SANOTEN (SODIUM VALPROATE) [Concomitant]
     Indication: CONVULSION
     Route: 048
     Dates: start: 20021101, end: 20080928
  24. SANOTEN (SODIUM VALPROATE) [Concomitant]
     Route: 048
     Dates: start: 20081007, end: 20081027
  25. SAWATENE [Concomitant]
     Route: 048
     Dates: start: 20080929
  26. PICILLIBACTA (SULBACTAM  SODIUM CEFOPERAZONE SODIUM) [Concomitant]
     Indication: PNEUMONIA
     Route: 042
     Dates: start: 20080929, end: 20081007
  27. PAXIL [Concomitant]
     Indication: ANXIETY DISORDER
     Route: 048
     Dates: start: 20081003, end: 20081003
  28. CEFOCEF (SULBACTAM  SODIUM CEFOPERAZONE SODIUM) [Concomitant]
     Indication: PNEUMONIA
     Dosage: 2 GRAM DR
     Dates: start: 20081007, end: 20081014
  29. BISOLVON [Concomitant]
     Dosage: 12 MG IH
     Dates: start: 20081011, end: 20081012
  30. DIAPP [Concomitant]
     Indication: CONVULSION
     Dosage: 6 MG PR
     Dates: start: 20081028, end: 20081029
  31. PHENOBARBITAL TAB [Concomitant]
     Indication: CONVULSION
     Route: 030
     Dates: start: 20081031, end: 20081031

REACTIONS (2)
  - SOMNOLENCE [None]
  - THERAPEUTIC AGENT TOXICITY [None]
